FAERS Safety Report 6806104-8 (Version None)
Quarter: 2010Q2

REPORT INFORMATION
  Report Type: 
  Country: None (occurrence: None)
  Receive Date: 20100629
  Receipt Date: 20080107
  Transmission Date: 20101027
  Serious: No
  Sender: FDA-Public Use
  Company Number: US-PFIZER INC-2008002124

PATIENT
  Sex: Male
  Weight: 63.6 kg

DRUGS (5)
  1. VIAGRA [Suspect]
     Indication: ERECTILE DYSFUNCTION
     Dates: start: 20071201
  2. ZYPREXA [Concomitant]
  3. SIMVASTATIN [Concomitant]
  4. TERAZOSIN HCL [Concomitant]
  5. ACETYLSALICYLIC ACID [Concomitant]

REACTIONS (2)
  - EAR DISCOMFORT [None]
  - NASAL CONGESTION [None]
